FAERS Safety Report 10582240 (Version 2)
Quarter: 2014Q4

REPORT INFORMATION
  Report Type: Spontaneous
  Country: None (occurrence: JP)
  Receive Date: 20141113
  Receipt Date: 20141203
  Transmission Date: 20150529
  Serious: Yes (Other)
  Sender: FDA-Public Use
  Company Number: JP-TEVA-522391ISR

PATIENT
  Age: 55 Year
  Sex: Male

DRUGS (2)
  1. CISPLATIN. [Suspect]
     Active Substance: CISPLATIN
     Indication: LUNG ADENOCARCINOMA STAGE III
     Dosage: ON DAY 1
  2. IRINOTECAN [Suspect]
     Active Substance: IRINOTECAN
     Indication: LUNG ADENOCARCINOMA STAGE III
     Dosage: ON DAYS 1 AND 8

REACTIONS (2)
  - False positive investigation result [Unknown]
  - Sarcoidosis [Unknown]
